FAERS Safety Report 19283622 (Version 3)
Quarter: 2022Q1

REPORT INFORMATION
  Report Type: Report from Study
  Country: IL (occurrence: IL)
  Receive Date: 20210520
  Receipt Date: 20220331
  Transmission Date: 20220424
  Serious: Yes (Death, Hospitalization, Other)
  Sender: FDA-Public Use
  Company Number: IL-ABBVIE-21K-082-3911868-00

PATIENT
  Age: 83 Year
  Sex: Male
  Weight: 83 kg

DRUGS (8)
  1. VENETOCLAX [Suspect]
     Active Substance: VENETOCLAX
     Indication: Acute myeloid leukaemia
     Route: 048
     Dates: start: 20200713, end: 20200713
  2. VENETOCLAX [Suspect]
     Active Substance: VENETOCLAX
     Route: 048
     Dates: start: 20200714, end: 20200716
  3. VENETOCLAX [Suspect]
     Active Substance: VENETOCLAX
     Route: 048
     Dates: start: 20200717, end: 20200723
  4. VENETOCLAX [Suspect]
     Active Substance: VENETOCLAX
     Route: 048
     Dates: start: 20200824, end: 20200825
  5. VENETOCLAX [Suspect]
     Active Substance: VENETOCLAX
     Route: 048
     Dates: start: 20200826, end: 20200906
  6. AZACITIDINE [Suspect]
     Active Substance: AZACITIDINE
     Indication: Acute myeloid leukaemia
     Route: 058
     Dates: start: 20200713, end: 2020
  7. AZACITIDINE [Suspect]
     Active Substance: AZACITIDINE
     Route: 058
     Dates: start: 20200825, end: 20200831
  8. ENOXAPARIN SODIUM [Concomitant]
     Active Substance: ENOXAPARIN SODIUM
     Indication: Embolism venous
     Dates: start: 2015

REACTIONS (4)
  - Death [Fatal]
  - Sepsis [Fatal]
  - Neutropenia [Recovered/Resolved]
  - Neuropathy peripheral [Unknown]

NARRATIVE: CASE EVENT DATE: 20200101
